FAERS Safety Report 8116443-9 (Version None)
Quarter: 2012Q1

REPORT INFORMATION
  Report Type: 
  Country: None (occurrence: None)
  Receive Date: 20120206
  Receipt Date: 20120131
  Transmission Date: 20120608
  Serious: Yes (Life-Threatening, Hospitalization)
  Sender: FDA-Public Use
  Company Number: US-ACTELION-A-NJ2012-59936

PATIENT

DRUGS (3)
  1. PREDNISONE [Concomitant]
  2. ACETYLCYSTEINE [Concomitant]
  3. TRACLEER [Suspect]
     Indication: PULMONARY ARTERIAL HYPERTENSION
     Dosage: 62.5 MG, BID
     Route: 048
     Dates: start: 20091104

REACTIONS (6)
  - ANAEMIA [None]
  - RECTAL HAEMORRHAGE [None]
  - DIZZINESS POSTURAL [None]
  - TRANSFUSION [None]
  - DYSPNOEA [None]
  - GASTROINTESTINAL HAEMORRHAGE [None]
